FAERS Safety Report 17875129 (Version 1)
Quarter: 2020Q2

REPORT INFORMATION
  Report Type: Spontaneous
  Country: FR (occurrence: FR)
  Receive Date: 20200609
  Receipt Date: 20200609
  Transmission Date: 20200714
  Serious: Yes (Hospitalization)
  Sender: FDA-Public Use
  Company Number: FR-TEVA-2020-FR-1244604

PATIENT
  Age: 66 Year
  Sex: Female
  Weight: 40 kg

DRUGS (19)
  1. MAG 2 [Concomitant]
     Active Substance: MAGNESIUM
  2. DUROGESIC [Concomitant]
     Active Substance: FENTANYL
  3. CARBOPLATINE ACCORD 10 MG/ML, SOLUTION POUR PERFUSION [Suspect]
     Active Substance: CARBOPLATIN
     Indication: SQUAMOUS CELL CARCINOMA OF THE CERVIX
     Dosage: 135 MG
     Route: 042
     Dates: start: 20200203, end: 20200421
  4. ONDANSETRON [Concomitant]
     Active Substance: ONDANSETRON
  5. DEBRIDAT [Concomitant]
     Active Substance: TRIMEBUTINE MALEATE
  6. DIFFU K [Concomitant]
     Active Substance: POTASSIUM CHLORIDE
  7. EMLA [Concomitant]
     Active Substance: LIDOCAINE\PRILOCAINE
  8. NOCTAMIDE [Concomitant]
     Active Substance: LORMETAZEPAM
  9. PACLITAXEL. [Suspect]
     Active Substance: PACLITAXEL
     Indication: SQUAMOUS CELL CARCINOMA OF THE CERVIX
     Dosage: 83 MG
     Route: 042
     Dates: start: 201912, end: 20200421
  10. DUPHALAC [Concomitant]
     Active Substance: LACTULOSE
  11. EMEND [Concomitant]
     Active Substance: APREPITANT
  12. PRIMPERAN [Concomitant]
     Active Substance: METOCLOPRAMIDE HYDROCHLORIDE
  13. FAMOTIDINE. [Concomitant]
     Active Substance: FAMOTIDINE
  14. AVASTIN [Suspect]
     Active Substance: BEVACIZUMAB
     Indication: SQUAMOUS CELL CARCINOMA OF THE CERVIX
     Dosage: 400 MG
     Route: 042
     Dates: start: 20200406, end: 20200421
  15. GRANIONS DE ZINC 15 MG/2 ML, SOLUTION BUVABLE EN AMPOULE [Concomitant]
  16. ACTISKENAN [Concomitant]
     Active Substance: MORPHINE SULFATE
  17. SERESTA [Concomitant]
     Active Substance: OXAZEPAM
  18. ZYMAD [Concomitant]
     Active Substance: CHOLECALCIFEROL
  19. ACUPAN [Concomitant]
     Active Substance: NEFOPAM HYDROCHLORIDE

REACTIONS (1)
  - Posterior reversible encephalopathy syndrome [Recovered/Resolved]

NARRATIVE: CASE EVENT DATE: 20200511
